FAERS Safety Report 10681294 (Version 4)
Quarter: 2015Q1

REPORT INFORMATION
  Report Type: Spontaneous
  Country: BE (occurrence: BE)
  Receive Date: 20141230
  Receipt Date: 20150310
  Transmission Date: 20150720
  Serious: Yes (Other)
  Sender: FDA-Public Use
  Company Number: BE-BEH-2014044800

PATIENT
  Age: 1 Year
  Sex: Male

DRUGS (3)
  1. HIZENTRA [Suspect]
     Active Substance: HUMAN IMMUNOGLOBULIN G
     Dosage: INFUSION RATE 10 ML IN 1 HOUR; 05-NOV-2014
     Route: 058
  2. HIZENTRA [Suspect]
     Active Substance: HUMAN IMMUNOGLOBULIN G
     Dosage: THERAPY ONGOING
     Route: 058
  3. HIZENTRA [Suspect]
     Active Substance: HUMAN IMMUNOGLOBULIN G

REACTIONS (13)
  - Lacrimation increased [Unknown]
  - Decreased appetite [Unknown]
  - Pyrexia [Unknown]
  - Cough [Unknown]
  - Pharyngitis [Unknown]
  - Respiratory tract infection [Unknown]
  - Diarrhoea [Unknown]
  - Gastroenteritis [Unknown]
  - Pyrexia [Unknown]
  - Nasopharyngitis [Unknown]
  - Rash generalised [Unknown]
  - Diarrhoea [Unknown]
  - Otitis media [Unknown]

NARRATIVE: CASE EVENT DATE: 20140919
